FAERS Safety Report 9168036 (Version 2)
Quarter: 2013Q2

REPORT INFORMATION
  Report Type: Spontaneous
  Country: US (occurrence: US)
  Receive Date: 20130318
  Receipt Date: 20130612
  Transmission Date: 20140414
  Serious: No
  Sender: FDA-Public Use
  Company Number: US-VERTEX PHARMACEUTICALS INC.-2013-003638

PATIENT
  Sex: Male

DRUGS (7)
  1. INCIVEK [Suspect]
     Indication: HEPATITIS C
     Dosage: 750 MG, TID
     Route: 048
     Dates: start: 20130103, end: 20130313
  2. PEGASYS [Suspect]
     Indication: HEPATITIS C
     Dosage: UNK
     Dates: start: 20130103
  3. RIBAVIRIN [Suspect]
     Indication: HEPATITIS C
     Dosage: UNK
     Dates: start: 20130103
  4. LEVOTHYROXINE [Concomitant]
  5. RANITIDINE [Concomitant]
  6. PROMETHAZINE [Concomitant]
  7. AUGMENTIN [Concomitant]

REACTIONS (4)
  - Cellulitis [Unknown]
  - Pain in extremity [Unknown]
  - Rash erythematous [Recovered/Resolved]
  - Local swelling [Recovered/Resolved]
